FAERS Safety Report 4619132-8 (Version None)
Quarter: 2005Q1

REPORT INFORMATION
  Report Type: 
  Country: None (occurrence: None)
  Receive Date: 20050325
  Receipt Date: 20050204
  Transmission Date: 20050727
  Serious: Yes (Hospitalization)
  Sender: FDA-Public Use
  Company Number: US-GLAXOSMITHKLINE-A0544110A

PATIENT
  Age: 41 Year
  Sex: Female
  Weight: 70.5 kg

DRUGS (2)
  1. PAXIL CR [Suspect]
     Indication: DEPRESSION
     Dosage: 37.5MG UNKNOWN
     Route: 048
  2. ALPRAZOLAM [Concomitant]
     Indication: ANXIETY
     Dosage: .5MG AS REQUIRED
     Route: 048

REACTIONS (9)
  - ABDOMINAL DISTENSION [None]
  - AMNESIA [None]
  - ANXIETY [None]
  - DRUG INEFFECTIVE [None]
  - HEADACHE [None]
  - POLYURIA [None]
  - THIRST [None]
  - UTERINE LEIOMYOMA [None]
  - VISION BLURRED [None]
